FAERS Safety Report 7392279-1 (Version None)
Quarter: 2011Q1

REPORT INFORMATION
  Report Type: 
  Country: None (occurrence: None)
  Receive Date: 20110323
  Receipt Date: 20110307
  Transmission Date: 20110831
  Serious: Yes (Death, Hospitalization)
  Sender: FDA-Public Use
  Company Number: DEP_00477_2011

PATIENT
  Age: 80 Year
  Sex: Female

DRUGS (2)
  1. CIPROFLOXACIN [Suspect]
     Indication: PRODUCT USED FOR UNKNOWN INDICATION
     Dosage: DF
  2. METRONIDAZOLE [Suspect]
     Indication: PRODUCT USED FOR UNKNOWN INDICATION
     Dosage: DF

REACTIONS (10)
  - BLOOD ALKALINE PHOSPHATASE INCREASED [None]
  - DNA ANTIBODY POSITIVE [None]
  - BLOOD BILIRUBIN INCREASED [None]
  - INTERNATIONAL NORMALISED RATIO INCREASED [None]
  - ALANINE AMINOTRANSFERASE INCREASED [None]
  - LIVER INJURY [None]
  - RASH [None]
  - HEPATIC FAILURE [None]
  - EOSINOPHILIA [None]
  - SMOOTH MUSCLE ANTIBODY POSITIVE [None]
